FAERS Safety Report 5219727-7 (Version None)
Quarter: 2007Q1

REPORT INFORMATION
  Report Type: 
  Country: None (occurrence: None)
  Receive Date: 20070125
  Receipt Date: 20070117
  Transmission Date: 20070707
  Serious: Yes (Other)
  Sender: FDA-Public Use
  Company Number: US-PFIZER INC-2006135713

PATIENT
  Sex: Male
  Weight: 67.1 kg

DRUGS (9)
  1. CHANTIX [Suspect]
     Indication: SMOKING CESSATION THERAPY
     Route: 048
  2. CHANTIX [Suspect]
     Indication: EMPHYSEMA
  3. CHANTIX [Suspect]
     Indication: DIABETES MELLITUS INSULIN-DEPENDENT
  4. ASACOL [Concomitant]
  5. LIPITOR [Concomitant]
  6. FOSAMAX [Concomitant]
  7. QUINAPRIL [Concomitant]
  8. PULMICORT [Concomitant]
     Route: 055
  9. COMBIVENT [Concomitant]
     Route: 055

REACTIONS (6)
  - APATHY [None]
  - BLOOD GLUCOSE INCREASED [None]
  - INCREASED APPETITE [None]
  - NAUSEA [None]
  - VOMITING [None]
  - WEIGHT INCREASED [None]
